FAERS Safety Report 4900920-5 (Version None)
Quarter: 2006Q1

REPORT INFORMATION
  Report Type: 
  Country: None (occurrence: None)
  Receive Date: 20060113
  Receipt Date: 20051006
  Transmission Date: 20060701
  Serious: No
  Sender: FDA-Public Use
  Company Number: 2005SP002720

PATIENT
  Age: 38 Year
  Sex: Male
  Weight: 74.8435 kg

DRUGS (3)
  1. LUNESTA [Suspect]
     Indication: INSOMNIA
     Dosage: 3 MG;QD;ORAL
     Route: 048
     Dates: start: 20050701, end: 20050701
  2. ROGAINE [Concomitant]
  3. EFFEXOR [Concomitant]

REACTIONS (2)
  - HANGOVER [None]
  - PALPITATIONS [None]
